FAERS Safety Report 16207716 (Version 1)
Quarter: 2019Q2

REPORT INFORMATION
  Report Type: Spontaneous
  Country: US (occurrence: US)
  Receive Date: 20190313
  Receipt Date: 20190313
  Transmission Date: 20190711
  Serious: No
  Sender: FDA-Public Use
  Company Number: None

PATIENT
  Age: 56 Year
  Sex: Male
  Weight: 90.72 kg

DRUGS (5)
  1. REPATHA [Suspect]
     Active Substance: EVOLOCUMAB
     Indication: ARTERIOSCLEROSIS CORONARY ARTERY
     Dosage: ?          OTHER FREQUENCY:EVERY 2 WEEKS;?
     Route: 058
     Dates: start: 201807
  2. REPATHA [Suspect]
     Active Substance: EVOLOCUMAB
     Indication: PERIPHERAL VASCULAR DISORDER
  3. REPATHA [Suspect]
     Active Substance: EVOLOCUMAB
     Indication: PERIPHERAL VASCULAR DISORDER
     Dosage: ?          OTHER FREQUENCY:EVERY 2 WEEKS;?
     Route: 058
     Dates: start: 201807
  4. REPATHA [Suspect]
     Active Substance: EVOLOCUMAB
     Indication: ARTERIOSCLEROSIS CORONARY ARTERY
  5. REPATHA [Suspect]
     Active Substance: EVOLOCUMAB
     Indication: TYPE V HYPERLIPIDAEMIA
     Dosage: ?          OTHER FREQUENCY:EVERY 2 WEEKS;?
     Route: 058
     Dates: start: 201807

REACTIONS (1)
  - Arthralgia [None]
